FAERS Safety Report 23655366 (Version 1)
Quarter: 2024Q1

REPORT INFORMATION
  Report Type: Spontaneous
  Country: TW (occurrence: TW)
  Receive Date: 20240320
  Receipt Date: 20240320
  Transmission Date: 20240409
  Serious: Yes (Other)
  Sender: FDA-Public Use
  Company Number: TW-MET-002314

PATIENT
  Sex: Male

DRUGS (1)
  1. STENDRA [Suspect]
     Active Substance: AVANAFIL
     Indication: Product used for unknown indication
     Dosage: 200 MG HALF-TABLET
     Route: 065

REACTIONS (3)
  - Hypotonic urinary bladder [Unknown]
  - Wrong technique in product usage process [Unknown]
  - Drug ineffective [Unknown]
